FAERS Safety Report 23670071 (Version 1)
Quarter: 2024Q1

REPORT INFORMATION
  Report Type: Spontaneous
  Country: CN (occurrence: CN)
  Receive Date: 20240325
  Receipt Date: 20240325
  Transmission Date: 20240410
  Serious: Yes (Hospitalization, Other)
  Sender: FDA-Public Use
  Company Number: CN-009507513-2403CHN006999

PATIENT
  Age: 68 Year
  Sex: Male
  Weight: 65 kg

DRUGS (3)
  1. KEYTRUDA [Suspect]
     Active Substance: PEMBROLIZUMAB
     Indication: Neoplasm
     Dosage: 200 MG, Q3W, Q21D
     Route: 041
     Dates: start: 20231130, end: 20231226
  2. KEYTRUDA [Suspect]
     Active Substance: PEMBROLIZUMAB
     Indication: Lung adenocarcinoma
  3. SODIUM CHLORIDE [Concomitant]
     Active Substance: SODIUM CHLORIDE
     Indication: Medication dilution
     Dosage: 100 ML, Q3W, Q21D
     Route: 041
     Dates: start: 20231130, end: 20231226

REACTIONS (4)
  - Cardiotoxicity [Not Recovered/Not Resolved]
  - Hospitalisation [Unknown]
  - Hypertension [Unknown]
  - Troponin increased [Unknown]

NARRATIVE: CASE EVENT DATE: 20240122
